FAERS Safety Report 7605752-5 (Version None)
Quarter: 2011Q2

REPORT INFORMATION
  Report Type: 
  Country: None (occurrence: None)
  Receive Date: 20110624
  Receipt Date: 20100809
  Transmission Date: 20111010
  Serious: Yes (Other)
  Sender: FDA-Public Use
  Company Number: WWISSUE-476

PATIENT
  Sex: Female

DRUGS (1)
  1. HYDROCORTISONE TAB [Suspect]
     Indication: PRODUCT USED FOR UNKNOWN INDICATION
     Dates: end: 20100801

REACTIONS (1)
  - HYPERSENSITIVITY [None]
